FAERS Safety Report 5293878-3 (Version None)
Quarter: 2007Q2

REPORT INFORMATION
  Report Type: 
  Country: None (occurrence: None)
  Receive Date: 20070411
  Receipt Date: 20070330
  Transmission Date: 20071010
  Serious: Yes (Hospitalization)
  Sender: FDA-Public Use
  Company Number: FR-PFIZER INC-2007014728

PATIENT
  Age: 46 Year
  Sex: Female
  Weight: 52 kg

DRUGS (3)
  1. ADRIBLASTINE [Suspect]
     Indication: NEOPLASM MALIGNANT
     Route: 042
     Dates: start: 20021015, end: 20060115
  2. DETICENE [Suspect]
     Indication: NEOPLASM MALIGNANT
     Route: 042
     Dates: start: 20060215, end: 20060615
  3. HOLOXAN [Suspect]
     Indication: NEOPLASM MALIGNANT
     Route: 042
     Dates: start: 20021015, end: 20060115

REACTIONS (6)
  - BLOOD CALCIUM DECREASED [None]
  - DIALYSIS [None]
  - FEBRILE BONE MARROW APLASIA [None]
  - HYPOKALAEMIA [None]
  - RENAL FAILURE [None]
  - TUBULOINTERSTITIAL NEPHRITIS [None]
